FAERS Safety Report 7914188-9 (Version None)
Quarter: 2011Q4

REPORT INFORMATION
  Report Type: 
  Country: None (occurrence: None)
  Receive Date: 20111115
  Receipt Date: 20111115
  Transmission Date: 20120403
  Serious: No
  Sender: FDA-Public Use
  Company Number: None

PATIENT
  Age: 31 Year
  Sex: Female
  Weight: 65.77 kg

DRUGS (1)
  1. PROCHLORPERAZINE [Suspect]
     Dosage: 1
     Route: 054
     Dates: start: 20111110, end: 20111112

REACTIONS (4)
  - DYSKINESIA [None]
  - TREMOR [None]
  - ANXIETY [None]
  - RESTLESSNESS [None]
